FAERS Safety Report 7962420-8 (Version None)
Quarter: 2011Q4

REPORT INFORMATION
  Report Type: 
  Country: None (occurrence: None)
  Receive Date: 20111207
  Receipt Date: 20111129
  Transmission Date: 20120403
  Serious: Yes (Hospitalization)
  Sender: FDA-Public Use
  Company Number: JP-B.I. PHARMACEUTICALS,INC./RIDGEFIELD-2011-BP-23874NB

PATIENT
  Sex: Male
  Weight: 49 kg

DRUGS (13)
  1. TANATRIL [Concomitant]
     Indication: HYPERTENSION
     Dosage: 2.5 MG
     Route: 048
  2. DOGMATYL [Concomitant]
     Route: 065
  3. PRADAXA [Suspect]
     Indication: ATRIAL FIBRILLATION
     Dosage: 220 MG
     Route: 048
     Dates: start: 20110812, end: 20110930
  4. ACECOL [Concomitant]
     Route: 065
  5. VITANEURIN [Concomitant]
     Route: 065
  6. BETAMAC [Concomitant]
     Indication: GASTRITIS PROPHYLAXIS
     Dosage: 100 MG
     Route: 048
  7. ISOSORBIDE DINITRATE [Concomitant]
     Indication: ANGINA PECTORIS
     Dosage: 40 MG
     Route: 062
     Dates: start: 20110731
  8. ALINAMIN-F [Concomitant]
     Indication: VITAMIN SUPPLEMENTATION
     Dosage: 75 MG
     Route: 048
  9. ATELEC [Concomitant]
     Indication: HYPERTENSION
     Dosage: 10 MG
     Route: 048
  10. RABEPRAZOLE SODIUM [Concomitant]
     Indication: PROPHYLAXIS AGAINST GASTROINTESTINAL ULCER
     Dosage: 10 MG
     Route: 048
     Dates: start: 20110731
  11. ASPIRIN [Concomitant]
     Indication: ANGINA PECTORIS
     Dosage: 100 MG
     Route: 048
     Dates: start: 20110731
  12. DEPAS [Concomitant]
     Indication: INSOMNIA
     Dosage: 0.5 MG
     Route: 048
  13. ANTUP R [Concomitant]
     Route: 065

REACTIONS (1)
  - RHABDOMYOLYSIS [None]
